FAERS Safety Report 20472833 (Version 2)
Quarter: 2022Q1

REPORT INFORMATION
  Report Type: Spontaneous
  Country: AU (occurrence: AU)
  Receive Date: 20220215
  Receipt Date: 20220328
  Transmission Date: 20220423
  Serious: Yes (Hospitalization, Other)
  Sender: FDA-Public Use
  Company Number: AU-NOVOPROD-889402

PATIENT
  Age: 73 Year
  Sex: Male
  Weight: 85 kg

DRUGS (19)
  1. OZEMPIC [Suspect]
     Active Substance: SEMAGLUTIDE
     Indication: Type 2 diabetes mellitus
     Dosage: 1 MG, QW
     Route: 065
     Dates: start: 202110, end: 20220119
  2. PEGASYS [Concomitant]
     Active Substance: PEGINTERFERON ALFA-2A
     Dosage: 90 ?G, QW
     Route: 058
  3. PEGASYS [Concomitant]
     Active Substance: PEGINTERFERON ALFA-2A
     Indication: Polycythaemia
     Dosage: 135 ?G, QW
     Route: 058
  4. BISOPROLOL FUMARATE [Concomitant]
     Active Substance: BISOPROLOL FUMARATE
     Indication: Cardiac failure
     Dosage: 5.00 MG, BID (TAKE ONE TABLET TWICE A DAY (1 MORNING, 1 BEDTIME))
     Route: 065
  5. FRUSEMID [FUROSEMIDE] [Concomitant]
     Indication: Hypertension
     Dosage: 20.00 MG, QD (TAKE HALF A TABLET (20MG) DAILY IF WEIGHT GREATER THAN 90KG (0.5 IN THE MORNING)
     Route: 065
  6. ROSUVASTATIN [Concomitant]
     Active Substance: ROSUVASTATIN
     Indication: Cardiovascular event prophylaxis
  7. ROSUVASTATIN [Concomitant]
     Active Substance: ROSUVASTATIN
     Indication: Blood cholesterol increased
     Dosage: 20.00 MG, QD (TAKE ONE TABLET AT NIGHT (1 IN THE EVENING))
     Route: 065
  8. ROSUVASTATIN [Concomitant]
     Active Substance: ROSUVASTATIN
     Indication: Nervous system disorder prophylaxis
  9. CLOPIDOGREL [Concomitant]
     Active Substance: CLOPIDOGREL BISULFATE
     Indication: Cardiovascular event prophylaxis
     Dosage: 75.00 MG, QD
     Route: 065
  10. ASPIRIN [Concomitant]
     Active Substance: ASPIRIN
     Indication: Cardiovascular event prophylaxis
     Dosage: 100.00 MG, QD (SWALLOW WHOLE ONE TABLET IN THE MORNING)
     Route: 065
  11. PANTOPRAZOLE [Concomitant]
     Active Substance: PANTOPRAZOLE
     Indication: Antacid therapy
     Dosage: 20.00 MG, QD (SWALLOW WHOLE ONE TABLET AT NIGHT (1 IN THE EVENING))
     Route: 065
  12. METFORMIN HYDROCHLORIDE [Concomitant]
     Active Substance: METFORMIN HYDROCHLORIDE
     Indication: Type 2 diabetes mellitus
     Dosage: 500.00 MG, BID (TAKE TWO TABLETS DAILY (1000MG) WITH OR SOON AFTER FOOD. (2 AT BEDTIME))
     Route: 065
  13. DUTASTERIDE [Concomitant]
     Active Substance: DUTASTERIDE
     Indication: Benign prostatic hyperplasia
     Dosage: 0.5 MG, QD (TAKE ONE CAPSULE AT NIGHT (1 IN THE EVENING))
     Route: 065
  14. SODIBIC [Concomitant]
     Indication: Prophylaxis
     Dosage: 840.00 MG, BID (TAKE ONE CAPSULE TWICE A DAY [1 IN THE MORNING AND 1 IN THE EVENING])
     Route: 065
  15. PANADOL [Concomitant]
     Active Substance: ACETAMINOPHEN
     Indication: Pain
     Dosage: 10 YEARS TILL NOW TAKE TWO CAPSULES FOUR TIMES A DAY WHEN REQUIRED *MAXIMUM OF 8 PER DAY (AS REQUIRE
     Route: 065
  16. NALOXONE HYDROCHLORIDE\OXYCODONE HYDROCHLORIDE [Concomitant]
     Active Substance: NALOXONE HYDROCHLORIDE\OXYCODONE HYDROCHLORIDE
     Indication: Pain
     Dosage: SWALLOW WHOLE ONE TABLET TWICE A DAY FOR CONTINUOUS RELIEF OF VERY STRONG PAIN
     Route: 065
  17. ENSURE TWOCAL [Concomitant]
     Indication: Product used for unknown indication
     Dosage: 100.00 ML, QD (TAKE 100ML AT 1900 (100ML IN THE EVENING))
     Route: 065
  18. JARDIANCE [Concomitant]
     Active Substance: EMPAGLIFLOZIN
     Dosage: UNK
     Dates: end: 20220120
  19. OXYCODONE [Concomitant]
     Active Substance: OXYCODONE
     Indication: Pain
     Dosage: TAKE ONE TO TWO TABLETS EVERY SIX HOURS WHEN REQUIRED FOR VERY STRONG PAIN RELIEF (AS REQUIRED)

REACTIONS (16)
  - Rib fracture [Recovering/Resolving]
  - Red blood cell count increased [Unknown]
  - Retinal haemorrhage [Recovered/Resolved]
  - Muscular weakness [Recovering/Resolving]
  - Balance disorder [Recovering/Resolving]
  - Fall [Recovering/Resolving]
  - Skin discolouration [Recovering/Resolving]
  - Taste disorder [Recovering/Resolving]
  - Gait disturbance [Not Recovered/Not Resolved]
  - Weight decreased [Not Recovered/Not Resolved]
  - Decreased appetite [Recovering/Resolving]
  - Vomiting [Recovered/Resolved]
  - Diarrhoea [Recovered/Resolved]
  - Dizziness [Recovering/Resolving]
  - Fatigue [Recovering/Resolving]
  - Drug hypersensitivity [Unknown]

NARRATIVE: CASE EVENT DATE: 20220101
